FAERS Safety Report 4544086-2 (Version None)
Quarter: 2005Q1

REPORT INFORMATION
  Report Type: 
  Country: None (occurrence: None)
  Receive Date: 20050103
  Receipt Date: 20030619
  Transmission Date: 20050727
  Serious: Yes (Hospitalization)
  Sender: FDA-Public Use
  Company Number: GXKR2003NL00443

PATIENT
  Age: 60 Year
  Sex: Male

DRUGS (9)
  1. VERAPAMIL HYDROCHLORIDE (NGX) (VERAPAMIL) TABLET [Suspect]
     Dosage: 240 MG, QD, ORAL
     Route: 048
  2. SELEKTINE (PRAVASTATIN SODIUM) TABLET [Suspect]
     Indication: HYPERCHOLESTEROLAEMIA
     Dosage: 40 MG, QD, ORAL
     Route: 048
     Dates: start: 19981022
  3. GRAPEFRUIT JUICE (CITRUS X PARADISI FRUIT JUICE) [Concomitant]
  4. VIOXX [Concomitant]
  5. COVERSYL/BEL (PERINDOPRIL ERBUMINE) TABLET [Concomitant]
  6. METAMUCIL ^PROCTER + GAMBLE^ (GLUCOSE MONOHYDRATE, ISPAGHULA HUSK, PLA [Concomitant]
  7. CARBASALATE CALCIUM (CARBASALATE CALCIUM) [Concomitant]
  8. LOPERAMIDE HYDROCHLORIDE (LOPERAMIDE HYDROCHLORIDE) CAPSULE [Concomitant]
  9. NITROLINGUAL (GLYCERYL TRINITRATE) [Concomitant]

REACTIONS (4)
  - FLUSHING [None]
  - FOOD INTERACTION [None]
  - MALAISE [None]
  - PALPITATIONS [None]
